FAERS Safety Report 6989116-3 (Version None)
Quarter: 2010Q3

REPORT INFORMATION
  Report Type: 
  Country: None (occurrence: None)
  Receive Date: 20100916
  Receipt Date: 20090805
  Transmission Date: 20110219
  Serious: Yes (Hospitalization, Other)
  Sender: FDA-Public Use
  Company Number: NO-PFIZER INC-2009250469

PATIENT
  Sex: Female

DRUGS (6)
  1. LYRICA [Suspect]
     Indication: PAIN
     Dosage: 150 MG, UNK
  2. SOBRIL [Concomitant]
     Dosage: UNK
  3. TRAMADOL HCL [Concomitant]
     Dosage: UNK
  4. NOZINAN [Concomitant]
     Dosage: UNK
  5. RIVOTRIL [Concomitant]
     Dosage: UNK
  6. PINEX FORTE [Concomitant]
     Dosage: UNK

REACTIONS (4)
  - DRUG PRESCRIBING ERROR [None]
  - FALL [None]
  - FEELING DRUNK [None]
  - LOSS OF CONSCIOUSNESS [None]
